FAERS Safety Report 7247719-5 (Version None)
Quarter: 2011Q1

REPORT INFORMATION
  Report Type: 
  Country: None (occurrence: None)
  Receive Date: 20110127
  Receipt Date: 20110124
  Transmission Date: 20110831
  Serious: Yes (Hospitalization)
  Sender: FDA-Public Use
  Company Number: JP-MERCK-1012USA03883

PATIENT
  Age: 84 Year
  Sex: Female

DRUGS (3)
  1. TRYPTANOL [Concomitant]
     Indication: DEPRESSION
     Route: 048
  2. COZAAR [Concomitant]
     Indication: HYPERTENSION
     Route: 048
  3. HYZAAR [Suspect]
     Indication: HYPERTENSION
     Route: 048

REACTIONS (4)
  - DEPRESSION [None]
  - HYPONATRAEMIA [None]
  - DECREASED APPETITE [None]
  - GAIT DISTURBANCE [None]
